FAERS Safety Report 9142737 (Version 1)
Quarter: 2013Q1

REPORT INFORMATION
  Report Type: Spontaneous
  Country: US (occurrence: US)
  Receive Date: 20130306
  Receipt Date: 20130306
  Transmission Date: 20140127
  Serious: No
  Sender: FDA-Public Use
  Company Number: US-ENDO PHARMACEUTICALS INC.-OPER20120008

PATIENT
  Sex: Female

DRUGS (3)
  1. OPANA ER 30MG [Suspect]
     Indication: PAIN
     Route: 048
     Dates: end: 20111224
  2. OPANA [Suspect]
     Indication: BREAKTHROUGH PAIN
     Route: 048
     Dates: end: 20111224
  3. MORPHINE SULFATE [Suspect]
     Indication: PAIN
     Route: 048
     Dates: start: 201112, end: 20120105

REACTIONS (3)
  - Cold sweat [Unknown]
  - Tremor [Unknown]
  - Headache [Unknown]
